FAERS Safety Report 9256952 (Version 1)
Quarter: 2013Q2

REPORT INFORMATION
  Report Type: Spontaneous
  Country: GB (occurrence: None)
  Receive Date: 20130423
  Receipt Date: 20130423
  Transmission Date: 20140414
  Serious: Yes (Other)
  Sender: FDA-Public Use
  Company Number: GER/UKI/13/0029149

PATIENT
  Sex: Female

DRUGS (4)
  1. QUETIAPINE [Suspect]
     Indication: PERSONALITY DISORDER
  2. SERTRALINE [Suspect]
     Indication: DEPRESSION
     Dates: start: 20130301
  3. DIAZEPAM (DIAZEPAM) [Suspect]
     Indication: PRODUCT USED FOR UNKNOWN INDICATION
  4. ZOPICLONE (ZOPICLONE) [Suspect]
     Indication: PRODUCT USED FOR UNKNOWN INDICATION

REACTIONS (2)
  - Overdose [None]
  - Exposure during pregnancy [None]
